FAERS Safety Report 22239012 (Version 2)
Quarter: 2023Q2

REPORT INFORMATION
  Report Type: Spontaneous
  Country: AU (occurrence: AU)
  Receive Date: 20230421
  Receipt Date: 20230427
  Transmission Date: 20230722
  Serious: Yes (Other)
  Sender: FDA-Public Use
  Company Number: AU-SUN PHARMACEUTICAL INDUSTRIES LTD-2023R1-386111

PATIENT
  Age: 18 Month
  Sex: Female

DRUGS (13)
  1. VINCRISTINE [Suspect]
     Active Substance: VINCRISTINE
     Indication: Neuroblastoma
     Dosage: UNK
     Route: 065
  2. CYCLOPHOSPHAMIDE [Suspect]
     Active Substance: CYCLOPHOSPHAMIDE
     Indication: Neuroblastoma
     Dosage: UNK
     Route: 065
  3. IFOSFAMIDE [Suspect]
     Active Substance: IFOSFAMIDE
     Indication: Neuroblastoma
     Dosage: UNK
     Route: 065
  4. ETOPOSIDE [Suspect]
     Active Substance: ETOPOSIDE
     Indication: Neuroblastoma
     Dosage: UNK
     Route: 065
  5. ADRIAMYCIN [Suspect]
     Active Substance: DOXORUBICIN HYDROCHLORIDE
     Indication: Neuroblastoma
     Dosage: UNK
     Route: 065
  6. ACTINOMYCIN D [Suspect]
     Active Substance: DACTINOMYCIN
     Indication: Neuroblastoma
     Dosage: UNK
     Route: 065
  7. CISPLATIN [Concomitant]
     Active Substance: CISPLATIN
     Indication: Neuroblastoma
     Dosage: UNK
     Route: 065
  8. MELPHALAN [Concomitant]
     Active Substance: MELPHALAN
     Indication: Neuroblastoma
     Dosage: UNK
     Route: 065
  9. FLUDARABINE [Concomitant]
     Active Substance: FLUDARABINE PHOSPHATE
     Indication: Neuroblastoma
     Dosage: UNK
     Route: 065
  10. CYTARABINE [Concomitant]
     Active Substance: CYTARABINE
     Indication: Neuroblastoma
     Dosage: UNK
     Route: 065
  11. IDARUBICIN [Concomitant]
     Active Substance: IDARUBICIN
     Indication: Neuroblastoma
     Dosage: UNK
     Route: 065
  12. BUSULFAN [Concomitant]
     Active Substance: BUSULFAN
     Indication: Neuroblastoma
     Dosage: UNK
     Route: 065
  13. ATGAM [Concomitant]
     Active Substance: EQUINE THYMOCYTE IMMUNE GLOBULIN
     Indication: Neuroblastoma
     Dosage: UNK
     Route: 065

REACTIONS (1)
  - Central hypothyroidism [Unknown]
